FAERS Safety Report 4283913-3 (Version None)
Quarter: 2004Q1

REPORT INFORMATION
  Report Type: 
  Country: None (occurrence: None)
  Receive Date: 20040130
  Receipt Date: 20040113
  Transmission Date: 20041129
  Serious: Yes (Other)
  Sender: FDA-Public Use
  Company Number: USA030435040

PATIENT
  Age: 68 Year
  Sex: Female
  Weight: 50 kg

DRUGS (4)
  1. FORTEO [Suspect]
     Indication: OSTEOPOROSIS
     Dosage: 20 UG/DAY
     Dates: start: 20030418
  2. CALCIUM [Concomitant]
  3. MULTI-VITAMINS [Concomitant]
  4. PREMARIN [Concomitant]

REACTIONS (27)
  - ARTHRALGIA [None]
  - BACK PAIN [None]
  - BALANCE DISORDER [None]
  - BONE PAIN [None]
  - CLAVICLE FRACTURE [None]
  - CONDITION AGGRAVATED [None]
  - CONTUSION [None]
  - DIZZINESS [None]
  - DYSPEPSIA [None]
  - FALL [None]
  - FATIGUE [None]
  - FEELING ABNORMAL [None]
  - HEADACHE [None]
  - INFLUENZA [None]
  - INJECTION SITE ERYTHEMA [None]
  - INJECTION SITE HAEMORRHAGE [None]
  - INJECTION SITE PAIN [None]
  - INJECTION SITE REACTION [None]
  - LACERATION [None]
  - LOWER LIMB FRACTURE [None]
  - MUSCLE CRAMP [None]
  - NAUSEA [None]
  - PATELLA FRACTURE [None]
  - PRURITUS [None]
  - SCIATIC NERVE INJURY [None]
  - SKIN LACERATION [None]
  - VERTIGO [None]
